FAERS Safety Report 8472123-1 (Version None)
Quarter: 2012Q2

REPORT INFORMATION
  Report Type: 
  Country: None (occurrence: None)
  Receive Date: 20120627
  Receipt Date: 20120622
  Transmission Date: 20120825
  Serious: Yes (Life-Threatening, Congenital Anomaly)
  Sender: FDA-Public Use
  Company Number: RU-ABBOTT-12P-251-0948604-00

PATIENT

DRUGS (1)
  1. KALETRA [Suspect]
     Indication: MATERNAL EXPOSURE TIMING UNSPECIFIED
     Route: 064

REACTIONS (3)
  - HYDROCEPHALUS [None]
  - CEREBRAL ATROPHY [None]
  - FOETAL EXPOSURE DURING PREGNANCY [None]
